FAERS Safety Report 9247010 (Version 1)
Quarter: 2013Q2

REPORT INFORMATION
  Report Type: Spontaneous
  Country: US (occurrence: US)
  Receive Date: 20130423
  Receipt Date: 20130423
  Transmission Date: 20140414
  Serious: No
  Sender: FDA-Public Use
  Company Number: US-009507513-1304USA008026

PATIENT
  Sex: Female
  Weight: 107 kg

DRUGS (3)
  1. VICTRELIS [Suspect]
     Indication: HEPATITIS C
     Dosage: 800 MG, TID
     Route: 048
     Dates: start: 201302
  2. RIBASPHERE [Suspect]
  3. PEGASYS [Suspect]
     Dosage: UNK, 180 MICROGRAM/0.5 ML PFS 4X0.5 ML KIT

REACTIONS (3)
  - Nausea [Unknown]
  - Vomiting [Unknown]
  - Dry mouth [Unknown]
